FAERS Safety Report 24135992 (Version 1)
Quarter: 2024Q3

REPORT INFORMATION
  Report Type: Spontaneous
  Country: US (occurrence: None)
  Receive Date: 20240724
  Receipt Date: 20240724
  Transmission Date: 20241017
  Serious: Yes (Death)
  Sender: Public
  Company Number: None

PATIENT
  Age: 66 Year
  Sex: Female

DRUGS (2)
  1. GEFITINIB [Suspect]
     Active Substance: GEFITINIB
     Indication: Malignant neoplasm of pleura metastatic
     Dosage: FREQUENCY : AS DIRECTED;? TAKE 1 TABLET BY MOUTH 1 TIME A DAY WITH FOODS. ADMINISTER GEFILINIB 12 HO
     Route: 048
     Dates: start: 20240620
  2. GEFITINIB [Suspect]
     Active Substance: GEFITINIB
     Indication: Lung neoplasm malignant

REACTIONS (1)
  - Death [None]

NARRATIVE: CASE EVENT DATE: 20240724
